FAERS Safety Report 5478444-9 (Version None)
Quarter: 2007Q4

REPORT INFORMATION
  Report Type: 
  Country: None (occurrence: None)
  Receive Date: 20071005
  Receipt Date: 20071001
  Transmission Date: 20080405
  Serious: Yes (Death, Disabling, Other)
  Sender: FDA-Public Use
  Company Number: US-BAYER-200713561BWH

PATIENT
  Sex: Male

DRUGS (1)
  1. TRASYLOL [Suspect]
     Indication: SURGERY
     Route: 042
     Dates: start: 20050301

REACTIONS (14)
  - ANHEDONIA [None]
  - CARDIAC FAILURE [None]
  - DEATH [None]
  - DEFORMITY [None]
  - DISABILITY [None]
  - EMOTIONAL DISTRESS [None]
  - FAMILY STRESS [None]
  - FEAR OF DEATH [None]
  - INJURY [None]
  - MENTAL DISORDER [None]
  - NERVOUSNESS [None]
  - PAIN [None]
  - RENAL FAILURE [None]
  - UNEVALUABLE EVENT [None]
